FAERS Safety Report 20805814 (Version 1)
Quarter: 2022Q2

REPORT INFORMATION
  Report Type: Spontaneous
  Country: CA (occurrence: CA)
  Receive Date: 20220510
  Receipt Date: 20220510
  Transmission Date: 20220721
  Serious: Yes (Congenital Anomaly)
  Sender: FDA-Public Use
  Company Number: CA-SA-2022SA160311

PATIENT
  Sex: Female

DRUGS (1)
  1. DUPIXENT [Suspect]
     Active Substance: DUPILUMAB
     Indication: Dermatitis atopic
     Dosage: 300 MG, QOW
     Route: 063
     Dates: start: 20200915

REACTIONS (3)
  - Benign neoplasm [Not Recovered/Not Resolved]
  - Jaundice [Not Recovered/Not Resolved]
  - Maternal exposure during breast feeding [Unknown]
